FAERS Safety Report 16974054 (Version 1)
Quarter: 2019Q4

REPORT INFORMATION
  Report Type: Spontaneous
  Country: US (occurrence: US)
  Receive Date: 20190912
  Receipt Date: 20190912
  Transmission Date: 20200122
  Serious: No
  Sender: FDA-Public Use
  Company Number: None

PATIENT
  Age: 55 Year
  Sex: Female

DRUGS (1)
  1. BOTOX [Suspect]
     Active Substance: ONABOTULINUMTOXINA
     Route: 030
     Dates: start: 201908

REACTIONS (5)
  - Facial nerve disorder [None]
  - Feeling abnormal [None]
  - Facial pain [None]
  - Toothache [None]
  - Headache [None]

NARRATIVE: CASE EVENT DATE: 20190912
